FAERS Safety Report 9112269 (Version 2)
Quarter: 2013Q4

REPORT INFORMATION
  Report Type: Spontaneous
  Country: US (occurrence: US)
  Receive Date: 20130219
  Receipt Date: 20131010
  Transmission Date: 20140711
  Serious: Yes (Hospitalization)
  Sender: FDA-Public Use
  Company Number: US-BRISTOL-MYERS SQUIBB COMPANY-16989329

PATIENT
  Age: 50 Year
  Sex: Female
  Weight: 60.77 kg

DRUGS (1)
  1. ABATACEPT SUBQ INJECTION 125MG/ML [Suspect]
     Indication: RHEUMATOID ARTHRITIS
     Dosage: INJECTION WAS 15SEP2012
     Route: 058
     Dates: start: 201208

REACTIONS (5)
  - Cyst [Unknown]
  - Adverse event [Unknown]
  - Drug ineffective [Unknown]
  - Nasopharyngitis [Unknown]
  - Viral infection [Unknown]
